FAERS Safety Report 4722873-5 (Version None)
Quarter: 2005Q3

REPORT INFORMATION
  Report Type: 
  Country: None (occurrence: None)
  Receive Date: 20050722
  Receipt Date: 20050207
  Transmission Date: 20060218
  Serious: Yes (Other)
  Sender: FDA-Public Use
  Company Number: PHEH2005US01817

PATIENT
  Age: 77 Year
  Sex: Male

DRUGS (5)
  1. ZOMETA [Suspect]
     Indication: MULTIPLE MYELOMA
     Dosage: 4 MG /MONTH
     Dates: start: 20030102, end: 20040501
  2. ZOMETA [Suspect]
     Dosage: 3 MG / EVERY 2 MONTHS.
     Dates: start: 20050101, end: 20050425
  3. ZOMETA [Suspect]
     Dosage: 4 MG/EVERY 2 MONTHS
     Dates: start: 20040501, end: 20050101
  4. PREDNISONE [Concomitant]
     Indication: MULTIPLE MYELOMA
     Dosage: 60 MG X 7 DAYS MONTHLY FOR 6 DOSES
     Dates: start: 20021105, end: 20030601
  5. PREDNISONE [Concomitant]
     Dosage: 60 MG X 7 DAYS MONTHLY FOR 6 DOSES
     Dates: start: 20021105, end: 20030601

REACTIONS (4)
  - BONE DISORDER [None]
  - IMPAIRED HEALING [None]
  - OSTEONECROSIS [None]
  - TOOTH EXTRACTION [None]
